FAERS Safety Report 4454592-7 (Version None)
Quarter: 2004Q3

REPORT INFORMATION
  Report Type: 
  Country: None (occurrence: None)
  Receive Date: 20040826
  Receipt Date: 20040630
  Transmission Date: 20050211
  Serious: No
  Sender: FDA-Public Use
  Company Number: WAES 040USA00138

PATIENT
  Age: 71 Year
  Sex: Male

DRUGS (2)
  1. ZETIA [Suspect]
     Indication: DYSLIPIDAEMIA
     Dosage: 10 MG/DAILY/PO
     Route: 048
     Dates: start: 20030601
  2. NEURONTIN [Concomitant]

REACTIONS (1)
  - ADRENAL DISORDER [None]
